FAERS Safety Report 5999647-0 (Version None)
Quarter: 2008Q4

REPORT INFORMATION
  Report Type: 
  Country: None (occurrence: None)
  Receive Date: 20081215
  Receipt Date: 20081203
  Transmission Date: 20090506
  Serious: Yes (Other)
  Sender: FDA-Public Use
  Company Number: US-AMGEN-KDL319114

PATIENT
  Sex: Female

DRUGS (10)
  1. ENBREL [Suspect]
     Indication: PSORIASIS
     Route: 058
     Dates: start: 20081111, end: 20081111
  2. METFORMIN HCL [Concomitant]
  3. CARTIA XT [Concomitant]
  4. HYZAAR [Concomitant]
  5. TRICOR [Concomitant]
  6. POTASSIUM CHLORIDE [Concomitant]
  7. PRAVACHOL [Concomitant]
  8. ASPIRIN [Concomitant]
  9. CALCIUM [Concomitant]
  10. EFFEXOR [Concomitant]

REACTIONS (9)
  - CHEST DISCOMFORT [None]
  - CHEST PAIN [None]
  - FEELING HOT [None]
  - INJECTION SITE INDURATION [None]
  - INJECTION SITE MASS [None]
  - INJECTION SITE URTICARIA [None]
  - INJECTION SITE WARMTH [None]
  - LYMPHADENOPATHY [None]
  - SKIN TIGHTNESS [None]
